APPROVED DRUG PRODUCT: TIOPRONIN
Active Ingredient: TIOPRONIN
Strength: 100MG
Dosage Form/Route: TABLET;ORAL
Application: A216198 | Product #001
Applicant: PH HEALTH LTD
Approved: Jun 2, 2022 | RLD: No | RS: No | Type: DISCN